FAERS Safety Report 4560600-5 (Version None)
Quarter: 2005Q1

REPORT INFORMATION
  Report Type: 
  Country: None (occurrence: None)
  Receive Date: 20050125
  Receipt Date: 20041129
  Transmission Date: 20050727
  Serious: Yes (Hospitalization)
  Sender: FDA-Public Use
  Company Number: JP-MERCK-0411USA04202

PATIENT
  Age: 48 Year
  Sex: Male

DRUGS (2)
  1. COZAAR [Suspect]
     Indication: HYPERTENSION
     Route: 048
     Dates: start: 20040605, end: 20041120
  2. LIPITOR [Suspect]
     Indication: HYPERLIPIDAEMIA
     Route: 065
     Dates: start: 20020501, end: 20041120

REACTIONS (1)
  - BLOOD CREATINE PHOSPHOKINASE INCREASED [None]
